FAERS Safety Report 24970622 (Version 2)
Quarter: 2025Q1

REPORT INFORMATION
  Report Type: Spontaneous
  Country: US (occurrence: US)
  Receive Date: 20250214
  Receipt Date: 20250218
  Transmission Date: 20250409
  Serious: Yes (Life-Threatening, Hospitalization, Other)
  Sender: PFIZER
  Company Number: US-MLMSERVICE-20250203-PI389995-00100-1

PATIENT
  Age: 57 Year
  Sex: Male

DRUGS (1)
  1. CISATRACURIUM BESYLATE [Suspect]
     Active Substance: CISATRACURIUM BESYLATE
     Indication: Hypoxia

REACTIONS (1)
  - Hyperthermia malignant [Recovering/Resolving]
